FAERS Safety Report 5599849-1 (Version None)
Quarter: 2008Q1

REPORT INFORMATION
  Report Type: 
  Country: None (occurrence: None)
  Receive Date: 20080117
  Receipt Date: 20080117
  Transmission Date: 20080703
  Serious: Yes (Hospitalization)
  Sender: FDA-Public Use
  Company Number: None

PATIENT
  Age: 87 Year
  Sex: Female
  Weight: 45.3597 kg

DRUGS (2)
  1. AMOXICILLIN + CLAVULANATE POTASSIUM [Suspect]
     Indication: URINARY TRACT INFECTION
     Dosage: 1/2 TABLET 500/125 3 TIMES A DAY
     Dates: start: 20070325, end: 20070328
  2. PHENAZOPYRIDINE HCL TAB [Suspect]
     Indication: URINARY TRACT DISORDER
     Dosage: 100MG 3 TIMES A DAY
     Dates: start: 20070325, end: 20070328

REACTIONS (2)
  - DIARRHOEA [None]
  - FALL [None]
